FAERS Safety Report 9444181 (Version 1)
Quarter: 2013Q3

REPORT INFORMATION
  Report Type: Spontaneous
  Country: US (occurrence: US)
  Receive Date: 20130729
  Receipt Date: 20130729
  Transmission Date: 20140515
  Serious: Yes (Other)
  Sender: FDA-Public Use
  Company Number: 2013035109

PATIENT
  Age: 56 Year
  Sex: Female

DRUGS (1)
  1. BERINERT P [Suspect]
     Indication: HEREDITARY ANGIOEDEMA
     Route: 042
     Dates: start: 20100913

REACTIONS (3)
  - Abdominal distension [None]
  - Pain [None]
  - Nausea [None]
